FAERS Safety Report 24135674 (Version 1)
Quarter: 2024Q3

REPORT INFORMATION
  Report Type: Spontaneous
  Country: US (occurrence: US)
  Receive Date: 20240725
  Receipt Date: 20240725
  Transmission Date: 20241017
  Serious: No
  Sender: ROCHE
  Company Number: US-ROCHE-10000034432

PATIENT

DRUGS (1)
  1. KADCYLA [Suspect]
     Active Substance: ADO-TRASTUZUMAB EMTANSINE
     Indication: Product use in unapproved indication
     Route: 065

REACTIONS (3)
  - Headache [Unknown]
  - Dizziness [Unknown]
  - Respiratory tract infection viral [Unknown]
